FAERS Safety Report 19207227 (Version 7)
Quarter: 2021Q2

REPORT INFORMATION
  Report Type: Report from Study
  Country: None (occurrence: NL)
  Receive Date: 20210430
  Receipt Date: 20210607
  Transmission Date: 20210717
  Serious: Yes (Hospitalization, Other)
  Sender: FDA-Public Use
  Company Number: NL-ABBVIE-21K-114-3885898-00

PATIENT
  Age: 68 Year
  Sex: Female

DRUGS (9)
  1. DUODOPA [Suspect]
     Active Substance: CARBIDOPA\LEVODOPA
     Indication: PARKINSON^S DISEASE
     Dosage: MD: 12 ML, CD: 4.2 ML, ED: 3.0 ML
     Route: 050
     Dates: start: 20210329, end: 2021
  2. DUODOPA [Suspect]
     Active Substance: CARBIDOPA\LEVODOPA
     Dosage: MD: 10 ML, CD: 4.1 ML/H, ED: 2.0 ML
     Route: 050
  3. LEVODOPA/CARBIDOPA [Concomitant]
     Active Substance: CARBIDOPA\LEVODOPA
     Indication: PRODUCT USED FOR UNKNOWN INDICATION
     Dosage: 62.5?MGA
  4. DUODOPA [Suspect]
     Active Substance: CARBIDOPA\LEVODOPA
     Dosage: MD: 10 ML, CD: 3.2 ML/H, ED: 2.0 ML
     Route: 050
     Dates: start: 2021, end: 2021
  5. DUODOPA [Suspect]
     Active Substance: CARBIDOPA\LEVODOPA
     Dosage: CD: 3.5 ML/H
     Route: 050
     Dates: start: 2021, end: 2021
  6. DUODOPA [Suspect]
     Active Substance: CARBIDOPA\LEVODOPA
     Dosage: CD: 3.6 ML/H
     Route: 050
     Dates: start: 2021
  7. DUODOPA [Suspect]
     Active Substance: CARBIDOPA\LEVODOPA
     Dosage: MD 10 ML; CD 4.4 ML/H; ED 2.0 ML
     Route: 050
  8. ENTACAPONE. [Concomitant]
     Active Substance: ENTACAPONE
     Indication: PRODUCT USED FOR UNKNOWN INDICATION
  9. NEUPRO [Concomitant]
     Active Substance: ROTIGOTINE
     Indication: PRODUCT USED FOR UNKNOWN INDICATION

REACTIONS (23)
  - Orthostatic intolerance [Not Recovered/Not Resolved]
  - Hypotension [Not Recovered/Not Resolved]
  - Insomnia [Not Recovered/Not Resolved]
  - Device difficult to use [Not Recovered/Not Resolved]
  - Procedural pain [Not Recovered/Not Resolved]
  - Fear [Not Recovered/Not Resolved]
  - Stoma site pain [Unknown]
  - Device dislocation [Recovered/Resolved]
  - Balance disorder [Not Recovered/Not Resolved]
  - Device placement issue [Unknown]
  - Incision site swelling [Unknown]
  - Medical device site swelling [Unknown]
  - Pain [Not Recovered/Not Resolved]
  - Abscess [Unknown]
  - Tension [Unknown]
  - On and off phenomenon [Not Recovered/Not Resolved]
  - Medical device discomfort [Not Recovered/Not Resolved]
  - Device occlusion [Not Recovered/Not Resolved]
  - Dizziness [Not Recovered/Not Resolved]
  - Pneumoperitoneum [Not Recovered/Not Resolved]
  - Dizziness [Recovered/Resolved]
  - Poisoning [Unknown]
  - Gait disturbance [Not Recovered/Not Resolved]

NARRATIVE: CASE EVENT DATE: 2021
